FAERS Safety Report 4972030-2 (Version None)
Quarter: 2006Q2

REPORT INFORMATION
  Report Type: 
  Country: None (occurrence: None)
  Receive Date: 20060413
  Receipt Date: 20060323
  Transmission Date: 20061013
  Serious: Yes (Other)
  Sender: FDA-Public Use
  Company Number: PL-ROCHE-441773

PATIENT
  Age: 44 Year
  Sex: Male

DRUGS (5)
  1. RIVOTRIL [Suspect]
     Indication: EPILEPSY
     Route: 048
  2. RIVOTRIL [Suspect]
     Route: 048
     Dates: start: 19700615, end: 19940615
  3. HEPATIL [Concomitant]
     Indication: HAEMANGIOMA OF LIVER
  4. VITAMIN A/VITAMIN E [Concomitant]
  5. VITAMIN B COMPLEX CAP [Concomitant]

REACTIONS (10)
  - ABDOMINAL PAIN [None]
  - ALOPECIA [None]
  - EPILEPSY [None]
  - EYE PAIN [None]
  - GENERAL PHYSICAL HEALTH DETERIORATION [None]
  - HEADACHE [None]
  - HEART RATE DECREASED [None]
  - HYPERSOMNIA [None]
  - HYPERTENSION [None]
  - PHARMACEUTICAL PRODUCT COMPLAINT [None]
